FAERS Safety Report 9375414 (Version 1)
Quarter: 2013Q2

REPORT INFORMATION
  Report Type: Spontaneous
  Country: US (occurrence: US)
  Receive Date: 20130628
  Receipt Date: 20130628
  Transmission Date: 20140414
  Serious: Yes (Other)
  Sender: FDA-Public Use
  Company Number: US-ACTAVIS-2013-11561

PATIENT
  Sex: 0

DRUGS (3)
  1. PROPRANOLOL HYDROCHLORIDE (AELLC) [Suspect]
     Indication: MIGRAINE
     Dosage: 80 MG, BID
     Route: 048
  2. PROPRANOLOL HYDROCHLORIDE (AELLC) [Suspect]
     Indication: BLOOD PRESSURE INCREASED
  3. PROPRANOLOL HYDROCHLORIDE (AELLC) [Suspect]
     Indication: PALPITATIONS

REACTIONS (3)
  - Ventricular extrasystoles [Not Recovered/Not Resolved]
  - Chest pain [Not Recovered/Not Resolved]
  - Drug ineffective [Not Recovered/Not Resolved]
